FAERS Safety Report 8301554-5 (Version None)
Quarter: 2012Q2

REPORT INFORMATION
  Report Type: 
  Country: None (occurrence: None)
  Receive Date: 20120420
  Receipt Date: 20120404
  Transmission Date: 20120825
  Serious: Yes (Hospitalization)
  Sender: FDA-Public Use
  Company Number: SE-ROCHE-1049153

PATIENT
  Sex: Female

DRUGS (3)
  1. ACTEMRA [Suspect]
     Indication: RHEUMATOID ARTHRITIS
     Dosage: FOR STRENGTH: 20 MG/ML
     Route: 042
     Dates: start: 20110204
  2. METHOTREXATE [Concomitant]
  3. CELEBREX [Concomitant]

REACTIONS (1)
  - RESPIRATORY DISORDER [None]
